FAERS Safety Report 10085994 (Version 1)
Quarter: 2014Q2

REPORT INFORMATION
  Report Type: Spontaneous
  Country: GB (occurrence: None)
  Receive Date: 20140416
  Receipt Date: 20140416
  Transmission Date: 20141212
  Serious: Yes (Other)
  Sender: FDA-Public Use
  Company Number: AUR-APL-2014-04420

PATIENT
  Sex: Female

DRUGS (3)
  1. SERTRALINE (SERTRALINE) [Suspect]
     Indication: ANXIETY
     Dosage: 50 MG, 1 IN 1 D
     Route: 048
  2. SERTRALINE (SERTRALINE) [Suspect]
     Indication: DEPRESSION
     Dosage: 50 MG, 1 IN 1 D
     Route: 048
  3. SUMATRIPTAN (SUMATRIPTAN) [Suspect]
     Indication: MIGRAINE

REACTIONS (3)
  - Hallucination [None]
  - Disorientation [None]
  - Drug interaction [None]
